FAERS Safety Report 23218242 (Version 3)
Quarter: 2023Q4

REPORT INFORMATION
  Report Type: Spontaneous
  Country: AU (occurrence: AU)
  Receive Date: 20231122
  Receipt Date: 20231128
  Transmission Date: 20240109
  Serious: Yes (Other)
  Sender: FDA-Public Use
  Company Number: AU-PFIZER INC-PV202300188556

PATIENT
  Age: 75 Year
  Sex: Female

DRUGS (4)
  1. PAXLOVID [Interacting]
     Active Substance: NIRMATRELVIR\RITONAVIR
     Indication: COVID-19 treatment
     Dosage: 300/100 MG, 2X/DAY FOR FIVE DAYS
  2. APIXABAN [Interacting]
     Active Substance: APIXABAN
     Dosage: UNK
  3. AMIODARONE [Interacting]
     Active Substance: AMIODARONE
     Dosage: UNK
  4. DILTIAZEM [Interacting]
     Active Substance: DILTIAZEM
     Dosage: UNK

REACTIONS (13)
  - Drug interaction [Recovered/Resolved]
  - Electrocardiogram QT prolonged [Recovered/Resolved]
  - Acute kidney injury [Recovered/Resolved]
  - Drug level above therapeutic [Recovered/Resolved]
  - Labelled drug-drug interaction medication error [Unknown]
  - Dizziness [Recovered/Resolved]
  - Nausea [Recovered/Resolved]
  - Malaise [Recovered/Resolved]
  - Liver function test abnormal [Recovered/Resolved]
  - Hypotension [Recovered/Resolved]
  - Off label use [Unknown]
  - Product use issue [Unknown]
  - Contraindicated product administered [Unknown]
